FAERS Safety Report 8591444-5 (Version None)
Quarter: 2012Q3

REPORT INFORMATION
  Report Type: 
  Country: None (occurrence: None)
  Receive Date: 20120801
  Receipt Date: 20100303
  Transmission Date: 20120928
  Serious: Yes (Hospitalization)
  Sender: FDA-Public Use
  Company Number: 2010AP000496

PATIENT
  Age: 50 Year
  Sex: Male

DRUGS (5)
  1. COLCHICINE [Suspect]
     Indication: GOUT
  2. MELPHALAN HYDROCHLORIDE [Concomitant]
  3. ALLOPURINOL [Suspect]
     Indication: GOUT
  4. PENICILLIN [Suspect]
     Indication: PROPHYLAXIS
  5. LANSOPRAZOLE [Suspect]

REACTIONS (1)
  - RENAL FAILURE ACUTE [None]
